FAERS Safety Report 6239214-7 (Version None)
Quarter: 2009Q2

REPORT INFORMATION
  Report Type: 
  Country: None (occurrence: None)
  Receive Date: 20090618
  Receipt Date: 20090608
  Transmission Date: 20091009
  Serious: Yes (Hospitalization)
  Sender: FDA-Public Use
  Company Number: GXKR2009FR06088

PATIENT
  Age: 35 Year
  Sex: Male

DRUGS (1)
  1. ZOLPIDEM [Suspect]
     Dosage: INTRA-ARTERIAL
     Route: 013

REACTIONS (10)
  - BLISTER [None]
  - CYANOSIS [None]
  - DRUG ABUSE [None]
  - FINGER AMPUTATION [None]
  - GENERAL PHYSICAL HEALTH DETERIORATION [None]
  - INCORRECT ROUTE OF DRUG ADMINISTRATION [None]
  - INFLAMMATION [None]
  - NECROSIS ISCHAEMIC [None]
  - PERIPHERAL ISCHAEMIA [None]
  - THROMBOSIS [None]
